FAERS Safety Report 24837494 (Version 3)
Quarter: 2025Q1

REPORT INFORMATION
  Report Type: Spontaneous
  Country: CN (occurrence: CN)
  Receive Date: 20250113
  Receipt Date: 20250117
  Transmission Date: 20250408
  Serious: Yes (Hospitalization, Other)
  Sender: PFIZER
  Company Number: CN-PFIZER INC-PV202500002751

PATIENT
  Age: 36 Year
  Sex: Female

DRUGS (2)
  1. PACLITAXEL [Suspect]
     Active Substance: PACLITAXEL
     Indication: Ovarian cancer
     Dosage: 200 MG, 1X/DAY
     Route: 041
     Dates: start: 20241227, end: 20241227
  2. CARBOPLATIN [Suspect]
     Active Substance: CARBOPLATIN
     Indication: Ovarian cancer
     Dosage: 450.000 MG, 1X/DAY
     Route: 041
     Dates: start: 20241227, end: 20241227

REACTIONS (4)
  - Myelosuppression [Recovering/Resolving]
  - Asthenia [Unknown]
  - Abdominal distension [Unknown]
  - Abdominal pain [Unknown]

NARRATIVE: CASE EVENT DATE: 20250102
